FAERS Safety Report 9146847 (Version 1)
Quarter: 2013Q1

REPORT INFORMATION
  Report Type: Report from Study
  Country: JP (occurrence: JP)
  Receive Date: 20130307
  Receipt Date: 20130307
  Transmission Date: 20140127
  Serious: Yes (Hospitalization)
  Sender: FDA-Public Use
  Company Number: JP-ELI_LILLY_AND_COMPANY-JP201302010058

PATIENT
  Age: 75 Year
  Sex: Male

DRUGS (5)
  1. GEMCITABINE HYDROCHLORIDE [Suspect]
     Indication: PANCREATIC CARCINOMA
     Dosage: 1000 MG/M2, OTHER
     Route: 042
     Dates: start: 20120516, end: 20120821
  2. OTHER PHARMA COMPANY INV DRUG [Suspect]
     Indication: PANCREATIC CARCINOMA
     Dosage: 2 MG, QD
     Route: 048
     Dates: start: 20120516, end: 20120618
  3. OTHER PHARMA COMPANY INV DRUG [Suspect]
     Dosage: 2 MG, QD
     Route: 048
     Dates: start: 20120626, end: 20120716
  4. OTHER PHARMA COMPANY INV DRUG [Suspect]
     Dosage: 2 MG, QD
     Route: 048
     Dates: start: 20120725, end: 20120806
  5. OTHER PHARMA COMPANY INV DRUG [Suspect]
     Dosage: 2 MG, QD
     Route: 048
     Dates: start: 20120814

REACTIONS (2)
  - Pneumonia [Recovering/Resolving]
  - Interstitial lung disease [Recovering/Resolving]
